FAERS Safety Report 5812773-1 (Version None)
Quarter: 2008Q3

REPORT INFORMATION
  Report Type: 
  Country: None (occurrence: None)
  Receive Date: 20080717
  Receipt Date: 20080711
  Transmission Date: 20090109
  Serious: Yes (Death)
  Sender: FDA-Public Use
  Company Number: AU-AVENTIS-200813554EU

PATIENT
  Sex: Female
  Weight: 1 kg

DRUGS (2)
  1. ENOXAPARIN SODIUM [Suspect]
     Route: 064
     Dates: start: 20080201, end: 20080703
  2. INSULIN [Suspect]
     Route: 064

REACTIONS (3)
  - ACIDOSIS [None]
  - DRUG EXPOSURE DURING PREGNANCY [None]
  - THROMBOCYTOPENIA [None]
